FAERS Safety Report 11574832 (Version 1)
Quarter: 2015Q3

REPORT INFORMATION
  Report Type: Spontaneous
  Country: US (occurrence: None)
  Receive Date: 20150929
  Receipt Date: 20150929
  Transmission Date: 20151125
  Serious: Yes (Life-Threatening)
  Sender: FDA-Public Use
  Company Number: None

PATIENT
  Age: 16 Year
  Sex: Female
  Weight: 52.16 kg

DRUGS (2)
  1. BENADRYL [Concomitant]
     Active Substance: DIPHENHYDRAMINE HYDROCHLORIDE
  2. CLARITHROMYCIN 500 MG [Suspect]
     Active Substance: CLARITHROMYCIN
     Indication: STREPTOCOCCAL INFECTION
     Dosage: 1 PILL
     Route: 048

REACTIONS (7)
  - Drug hypersensitivity [None]
  - Anaphylactic shock [None]
  - Pruritus [None]
  - Feeling abnormal [None]
  - Urticaria [None]
  - Rash [None]
  - Oropharyngeal pain [None]

NARRATIVE: CASE EVENT DATE: 20150928
